FAERS Safety Report 4607649-1 (Version None)
Quarter: 2005Q1

REPORT INFORMATION
  Report Type: 
  Country: None (occurrence: None)
  Receive Date: 20050309
  Receipt Date: 20050225
  Transmission Date: 20050727
  Serious: Yes (Hospitalization)
  Sender: FDA-Public Use
  Company Number: USA-2005-0019221

PATIENT
  Sex: Female

DRUGS (3)
  1. HYDROMORPHONE HCL [Suspect]
     Indication: PAIN
     Dosage: 0.01 MG/ML, SEE TEXT, EPIDURAL
     Route: 008
  2. BUPIVACAINE [Concomitant]
     Indication: PAIN
     Dosage: 0.125%, SEE TEXT, EPIDURAL
     Route: 008
  3. LACTATED RINGER'S INJECTION (SODIUM LACTATE, PTASSIUM CHLORIDE, SODIUM [Concomitant]

REACTIONS (5)
  - ANAESTHETIC COMPLICATION [None]
  - ASTHENIA [None]
  - MEDICATION ERROR [None]
  - NEUROPATHY [None]
  - RESPIRATORY DISORDER [None]
